FAERS Safety Report 7155914-9 (Version None)
Quarter: 2010Q4

REPORT INFORMATION
  Report Type: 
  Country: None (occurrence: None)
  Receive Date: 20101130
  Receipt Date: 20101115
  Transmission Date: 20110411
  Serious: Yes (Other)
  Sender: FDA-Public Use
  Company Number: AUR-APL-2010-02856

PATIENT
  Age: 26 Year
  Sex: Male

DRUGS (4)
  1. CITALOPRAM HYDROBROMIDE [Suspect]
     Indication: DEPRESSION
     Dosage: 40MG - DAILY - ORAL
     Route: 048
  2. WARFARIN SODIUM [Concomitant]
  3. MULTI-VITAMIN [Concomitant]
  4. TRAZODONE [Concomitant]

REACTIONS (9)
  - AKATHISIA [None]
  - CONDITION AGGRAVATED [None]
  - DEPRESSION [None]
  - EXTRAPYRAMIDAL DISORDER [None]
  - INCORRECT DOSE ADMINISTERED [None]
  - NECK PAIN [None]
  - SUICIDAL IDEATION [None]
  - TARDIVE DYSKINESIA [None]
  - TREATMENT NONCOMPLIANCE [None]
